FAERS Safety Report 5795518-3 (Version None)
Quarter: 2008Q2

REPORT INFORMATION
  Report Type: 
  Country: None (occurrence: None)
  Receive Date: 20080630
  Receipt Date: 20080618
  Transmission Date: 20081010
  Serious: Yes (Other)
  Sender: FDA-Public Use
  Company Number: PHEH2008US05518

PATIENT
  Sex: Male

DRUGS (1)
  1. TYZEKA [Suspect]
     Dosage: UNK
     Dates: start: 20070701

REACTIONS (2)
  - ABASIA [None]
  - NEUROPATHY PERIPHERAL [None]
